FAERS Safety Report 10190972 (Version 2)
Quarter: 2014Q2

REPORT INFORMATION
  Report Type: Spontaneous
  Country: CN (occurrence: CN)
  Receive Date: 20140523
  Receipt Date: 20140523
  Transmission Date: 20141212
  Serious: Yes (Hospitalization)
  Sender: FDA-Public Use
  Company Number: CN-JNJFOC-20131009336

PATIENT
  Age: 46 Year
  Sex: Female

DRUGS (1)
  1. SPORANOX [Suspect]
     Indication: VAGINAL INFECTION
     Route: 048
     Dates: start: 20130715

REACTIONS (2)
  - Upper limb fracture [Recovered/Resolved]
  - Road traffic accident [Recovered/Resolved]
